FAERS Safety Report 10857798 (Version 2)
Quarter: 2015Q4

REPORT INFORMATION
  Report Type: Spontaneous
  Country: US (occurrence: US)
  Receive Date: 20150223
  Receipt Date: 20151103
  Transmission Date: 20160304
  Serious: Yes (Hospitalization)
  Sender: FDA-Public Use
  Company Number: US-DSJP-DSU-2015-105345

PATIENT

DRUGS (1)
  1. BENICAR [Suspect]
     Active Substance: OLMESARTAN MEDOXOMIL
     Indication: HYPERTENSION
     Dosage: 20 MG, QD
     Dates: start: 200912, end: 201205

REACTIONS (14)
  - Duodenal ulcer [Unknown]
  - Gastrointestinal disorder [Unknown]
  - Enteritis [Unknown]
  - Hypomagnesaemia [Unknown]
  - Small intestinal bacterial overgrowth [Unknown]
  - Pneumatosis intestinalis [None]
  - Anxiety [Unknown]
  - Acute kidney injury [Unknown]
  - Pancreatic insufficiency [Unknown]
  - Syncope [Unknown]
  - Malabsorption [Unknown]
  - Coeliac disease [Unknown]
  - Steatorrhoea [Recovered/Resolved]
  - Gastrointestinal haemorrhage [Unknown]

NARRATIVE: CASE EVENT DATE: 20111215
